FAERS Safety Report 8886753 (Version 6)
Quarter: 2014Q1

REPORT INFORMATION
  Report Type: Report from Study
  Country: AU (occurrence: AU)
  Receive Date: 20121105
  Receipt Date: 20140210
  Transmission Date: 20141002
  Serious: Yes (Other)
  Sender: FDA-Public Use
  Company Number: PHHY2012AU099464

PATIENT
  Age: 81 Year
  Sex: Female

DRUGS (10)
  1. ACLASTA [Suspect]
     Indication: OSTEOPOROSIS
     Dosage: 5 MG, UNK
     Route: 042
     Dates: start: 20110914
  2. ACLASTA [Suspect]
     Dosage: 5 MG, UNK
     Route: 042
     Dates: start: 20130208
  3. KARVEZIDE [Concomitant]
     Indication: HYPERTENSION
     Dosage: 1 DF, UNK
     Route: 048
     Dates: start: 20121026
  4. VITAMIN D [Concomitant]
     Indication: OSTEOPOROSIS
     Dosage: 50000 U MONTHLY
     Route: 048
     Dates: start: 20120227
  5. INFLUENZA [Concomitant]
     Indication: IMMUNISATION
     Dosage: UNK UKN, UNK
     Dates: start: 20100407
  6. INFLUENZA [Concomitant]
     Dosage: UNK UKN, UNK
     Dates: start: 20120307
  7. AVAMYS [Concomitant]
     Dosage: 1 DF, QD BOTH SIDE
     Route: 045
  8. IRBESARTAN [Concomitant]
     Dosage: 1 DF, QD
  9. PARIET [Concomitant]
     Dosage: 1 DF, BID
  10. VIT D [Concomitant]
     Dosage: 1 DF, ONCE A MONTH

REACTIONS (4)
  - Ventricular extrasystoles [Unknown]
  - Myocardial infarction [Not Recovered/Not Resolved]
  - Chest pain [Recovered/Resolved]
  - Bradycardia [Not Recovered/Not Resolved]
